FAERS Safety Report 17816215 (Version 1)
Quarter: 2020Q2

REPORT INFORMATION
  Report Type: Spontaneous
  Country: US (occurrence: US)
  Receive Date: 20200522
  Receipt Date: 20200522
  Transmission Date: 20200714
  Serious: No
  Sender: FDA-Public Use
  Company Number: US-SA-2020SA132621

PATIENT
  Age: 39 Year
  Sex: Female

DRUGS (2)
  1. FASENRA [Concomitant]
     Active Substance: BENRALIZUMAB
  2. DUPIXENT [Suspect]
     Active Substance: DUPILUMAB
     Indication: NASAL POLYPS
     Dosage: 300 MG, QOW
     Route: 058
     Dates: start: 20200514

REACTIONS (6)
  - Paranasal sinus discomfort [Unknown]
  - Pain [Unknown]
  - Sinusitis [Unknown]
  - Hyposmia [Unknown]
  - Condition aggravated [Unknown]
  - Hypogeusia [Unknown]
